FAERS Safety Report 6182160-8 (Version None)
Quarter: 2009Q2

REPORT INFORMATION
  Report Type: 
  Country: None (occurrence: None)
  Receive Date: 20090505
  Receipt Date: 20090505
  Transmission Date: 20091009
  Serious: Yes (Life-Threatening, Hospitalization)
  Sender: FDA-Public Use
  Company Number: None

PATIENT
  Age: 44 Year
  Sex: Female
  Weight: 31.7518 kg

DRUGS (1)
  1. CETACAINE TOPICAL SPRAY [Suspect]
     Indication: HYPOAESTHESIA
     Dosage: SPRAY PER MD 1X OROPHARINGEAL
     Route: 049
     Dates: start: 20090501, end: 20090501

REACTIONS (3)
  - BLOOD METHAEMOGLOBIN PRESENT [None]
  - OXYGEN SATURATION DECREASED [None]
  - SKIN DISCOLOURATION [None]
